FAERS Safety Report 7367510-9 (Version None)
Quarter: 2011Q1

REPORT INFORMATION
  Report Type: 
  Country: None (occurrence: None)
  Receive Date: 20110322
  Receipt Date: 20110207
  Transmission Date: 20110831
  Serious: Yes (Death)
  Sender: FDA-Public Use
  Company Number: TR-BAYER-2010-004435

PATIENT
  Sex: Female

DRUGS (2)
  1. TEGRETOL [Concomitant]
     Indication: EPILEPSY
  2. BETAFERON [Suspect]
     Indication: MULTIPLE SCLEROSIS
     Dosage: 8 MIU, UNK
     Route: 058
     Dates: start: 20090622

REACTIONS (1)
  - MYOCARDIAL INFARCTION [None]
